FAERS Safety Report 22872810 (Version 2)
Quarter: 2023Q4

REPORT INFORMATION
  Report Type: Spontaneous
  Country: US (occurrence: US)
  Receive Date: 20230828
  Receipt Date: 20231004
  Transmission Date: 20240110
  Serious: No
  Sender: FDA-Public Use
  Company Number: US-AMGEN-USASP2023148790

PATIENT
  Age: 61 Year
  Sex: Female

DRUGS (2)
  1. XGEVA [Suspect]
     Active Substance: DENOSUMAB
     Indication: Breast cancer
     Dosage: 120 MILLIGRAM, QMO
     Route: 058
     Dates: start: 2016, end: 2017
  2. XGEVA [Suspect]
     Active Substance: DENOSUMAB
     Dosage: 120 MILLIGRAM, Q3MO
     Route: 058
     Dates: start: 2017, end: 20220706

REACTIONS (4)
  - Jaw disorder [Unknown]
  - Off label use [Unknown]
  - Gingival swelling [Unknown]
  - Gingival pain [Unknown]

NARRATIVE: CASE EVENT DATE: 20160101
